FAERS Safety Report 9154197 (Version 1)
Quarter: 2013Q1

REPORT INFORMATION
  Report Type: Spontaneous
  Country: US (occurrence: None)
  Receive Date: 20130308
  Receipt Date: 20130308
  Transmission Date: 20140127
  Serious: Yes (Other)
  Sender: FDA-Public Use
  Company Number: None

PATIENT
  Age: 60 Year
  Sex: Female

DRUGS (1)
  1. METFORMIN [Suspect]
     Indication: DIABETES MELLITUS
     Dosage: 1 TABLET  2X DA
     Dates: start: 201211

REACTIONS (4)
  - Influenza like illness [None]
  - Pain [None]
  - Blister [None]
  - Cellulitis [None]
